FAERS Safety Report 8582507-9 (Version None)
Quarter: 2012Q3

REPORT INFORMATION
  Report Type: 
  Country: None (occurrence: None)
  Receive Date: 20120809
  Receipt Date: 20120801
  Transmission Date: 20120928
  Serious: Yes (Death)
  Sender: FDA-Public Use
  Company Number: DE-JNJFOC-20120514125

PATIENT
  Sex: Female
  Weight: 60 kg

DRUGS (16)
  1. XARELTO [Suspect]
     Indication: ATRIAL FIBRILLATION
     Route: 048
     Dates: start: 20120303, end: 20120305
  2. ISOPTIN [Concomitant]
  3. FOSTER [Concomitant]
  4. CLARITHROMYCIN [Concomitant]
  5. ATACAND [Concomitant]
  6. MOVIPREP [Concomitant]
     Dosage: ONCE A DAY
  7. PREDNISOLONE [Concomitant]
  8. MARCUMAR [Concomitant]
     Dates: start: 20120301
  9. XARELTO [Suspect]
     Indication: CEREBROVASCULAR ACCIDENT PROPHYLAXIS
     Route: 048
     Dates: start: 20120303, end: 20120305
  10. PIPERACILLIN AND TAZOBACTAM [Concomitant]
     Dates: start: 20120301
  11. ASPIRIN [Concomitant]
  12. LASIX [Concomitant]
     Dates: start: 20120301
  13. SPIRIVA [Concomitant]
  14. SIMVASTATIN [Concomitant]
  15. GENTAMICIN SULFATE [Concomitant]
  16. KALINOR-ACID [Concomitant]

REACTIONS (3)
  - UPPER GASTROINTESTINAL HAEMORRHAGE [None]
  - CARDIOVASCULAR INSUFFICIENCY [None]
  - SHOCK HAEMORRHAGIC [None]
